FAERS Safety Report 6889847-X (Version None)
Quarter: 2010Q3

REPORT INFORMATION
  Report Type: 
  Country: None (occurrence: None)
  Receive Date: 20100730
  Receipt Date: 20080522
  Transmission Date: 20110219
  Serious: No
  Sender: FDA-Public Use
  Company Number: US-PFIZER INC-2008032573

PATIENT
  Sex: Male
  Weight: 81.3 kg

DRUGS (10)
  1. LIPITOR [Suspect]
     Indication: BLOOD CHOLESTEROL INCREASED
  2. LIPITOR [Suspect]
     Indication: CORONARY ARTERY DISEASE
  3. PLAVIX [Concomitant]
  4. OMEPRAZOLE [Concomitant]
  5. TRICOR [Concomitant]
  6. LISINOPRIL [Concomitant]
  7. ALTACE [Concomitant]
  8. INDAPAMIDE [Concomitant]
  9. NIASPAN [Concomitant]
  10. ATENOLOL [Concomitant]

REACTIONS (2)
  - BLOOD TRIGLYCERIDES INCREASED [None]
  - GLOMERULAR FILTRATION RATE DECREASED [None]
